FAERS Safety Report 7361848-7 (Version None)
Quarter: 2011Q1

REPORT INFORMATION
  Report Type: 
  Country: None (occurrence: None)
  Receive Date: 20110318
  Receipt Date: 20100806
  Transmission Date: 20110831
  Serious: Yes (Hospitalization, Other)
  Sender: FDA-Public Use
  Company Number: US-BAYER-200942775NA

PATIENT
  Sex: Female
  Weight: 108.84 kg

DRUGS (13)
  1. COPAXONE [Concomitant]
  2. AZITHROMYCIN [Concomitant]
  3. AMOXICILLIN [Concomitant]
  4. PRIMIDONE [Concomitant]
  5. OXYCODONE HCL [Concomitant]
  6. DEMEROL [Concomitant]
  7. WELLBUTRIN [Concomitant]
  8. NADOLOL [Concomitant]
     Dosage: UNK
     Dates: end: 20071211
  9. LOESTRIN 1.5/30 [Concomitant]
     Dosage: UNK
     Dates: start: 20071101
  10. PROMETHAZINE [Concomitant]
  11. NEXIUM [Concomitant]
  12. AXERT [Concomitant]
  13. YAZ [Suspect]
     Indication: PRODUCT USED FOR UNKNOWN INDICATION
     Dosage: 1 DF (DAILY DOSE), QD, ORAL
     Route: 048
     Dates: start: 20070901, end: 20080101

REACTIONS (7)
  - ATRIOVENTRICULAR BLOCK SECOND DEGREE [None]
  - GALLBLADDER INJURY [None]
  - CHOLECYSTITIS CHRONIC [None]
  - MENTAL DISORDER [None]
  - VENTRICULAR EXTRASYSTOLES [None]
  - CARDIAC DISORDER [None]
  - CHOLELITHIASIS [None]
